FAERS Safety Report 8400053-X (Version None)
Quarter: 2012Q2

REPORT INFORMATION
  Report Type: 
  Country: None (occurrence: None)
  Receive Date: 20120531
  Receipt Date: 20120523
  Transmission Date: 20120825
  Serious: Yes (Life-Threatening, Hospitalization)
  Sender: FDA-Public Use
  Company Number: DE-VERTEX PHARMACEUTICALS INC.-000000000000000501

PATIENT
  Sex: Male
  Weight: 107 kg

DRUGS (7)
  1. INCIVO (TELAPREVIR) [Suspect]
     Indication: HEPATITIS C
     Dosage: DOSAGE FORM: TABLET
     Route: 048
     Dates: start: 20120113, end: 20120402
  2. RAMIPRIL HCT [Concomitant]
     Route: 065
  3. INSULIN [Concomitant]
     Route: 065
  4. BISOPROLOL FUMARATE [Concomitant]
     Route: 065
  5. PEGASYS [Concomitant]
     Indication: HEPATITIS C
     Route: 058
     Dates: start: 20120113, end: 20120402
  6. OMEPRAZOLE [Concomitant]
     Route: 065
  7. COPEGUS [Concomitant]
     Indication: HEPATITIS C
     Route: 048
     Dates: start: 20120113, end: 20120402

REACTIONS (2)
  - ANAEMIA [None]
  - HEPATIC CIRRHOSIS [None]
